FAERS Safety Report 17867736 (Version 1)
Quarter: 2020Q2

REPORT INFORMATION
  Report Type: Spontaneous
  Country: CA (occurrence: CA)
  Receive Date: 20200605
  Receipt Date: 20200605
  Transmission Date: 20200714
  Serious: Yes (Other)
  Sender: FDA-Public Use
  Company Number: CA-AMNEAL PHARMACEUTICALS-2020-AMRX-01601

PATIENT

DRUGS (2)
  1. MIDODRINE HYDROCHLORIDE. [Suspect]
     Active Substance: MIDODRINE HYDROCHLORIDE
     Indication: VASOPLEGIA SYNDROME
     Dosage: INITIAL DOSE OF 10 [8.75-10] MG
     Route: 048
  2. NOREPINEPHRINE. [Concomitant]
     Active Substance: NOREPINEPHRINE
     Indication: VASOPLEGIA SYNDROME
     Dosage: 0.04 [0.03- 0.08] MCG/KG/MIN
     Route: 041

REACTIONS (1)
  - Acute kidney injury [Unknown]
